FAERS Safety Report 9115677 (Version 1)
Quarter: 2013Q1

REPORT INFORMATION
  Report Type: Spontaneous
  Country: US (occurrence: FR)
  Receive Date: 20130225
  Receipt Date: 20130225
  Transmission Date: 20140127
  Serious: Yes (Death)
  Sender: FDA-Public Use
  Company Number: US-SPECTRUM PHARMACEUTICALS, INC.-13-Z-FR-00062

PATIENT
  Age: 53 Year
  Sex: Male

DRUGS (3)
  1. ZEVALIN [Suspect]
     Indication: NON-HODGKIN^S LYMPHOMA
     Dosage: 0.4 MCI/KG, SINGLE
     Route: 042
     Dates: start: 20030918, end: 20030918
  2. RITUXAN [Suspect]
     Indication: NON-HODGKIN^S LYMPHOMA
     Dosage: 250 MG/M2, SINGLE
     Route: 042
     Dates: start: 20030918, end: 20030918
  3. RITUXAN [Suspect]
     Dosage: 250 MG/M2, SINGLE
     Route: 042
     Dates: start: 20030911, end: 20030911

REACTIONS (1)
  - Death [Fatal]
